FAERS Safety Report 4602841-4 (Version None)
Quarter: 2005Q1

REPORT INFORMATION
  Report Type: 
  Country: None (occurrence: None)
  Receive Date: 20050307
  Receipt Date: 20050225
  Transmission Date: 20050727
  Serious: Yes (Death)
  Sender: FDA-Public Use
  Company Number: 2005UW00593

PATIENT
  Age: 62 Year
  Sex: Male
  Weight: 84 kg

DRUGS (6)
  1. IRESSA [Suspect]
     Indication: LUNG NEOPLASM MALIGNANT
     Dosage: 250 MG PO
     Route: 048
     Dates: start: 20041125, end: 20041225
  2. METADON [Concomitant]
  3. NOVALGINA [Concomitant]
  4. MIONEVRIX [Concomitant]
  5. HIDANTAL [Concomitant]
  6. DECADRON [Concomitant]

REACTIONS (4)
  - CARDIAC ARREST [None]
  - CHEST PAIN [None]
  - LUNG NEOPLASM MALIGNANT [None]
  - RESPIRATORY ARREST [None]
